FAERS Safety Report 7049336 (Version 2)
Quarter: 2020Q3

REPORT INFORMATION
  Report Type: Report from Study
  Country: US (occurrence: US)
  Receive Date: 20090714
  Receipt Date: 20090814
  Transmission Date: 20201105
  Serious: Yes (Hospitalization)
  Sender: FDA-Public Use
  Company Number: US-ROCHE-642271

PATIENT
  Age: 56 Year
  Sex: Female
  Weight: 61 kg

DRUGS (3)
  1. AMBIEN CR [Suspect]
     Active Substance: ZOLPIDEM TARTRATE
     Indication: PRODUCT USED FOR UNKNOWN INDICATION
     Route: 065
  2. AMITRIPTYLINE HYDROCHLORIDE. [Suspect]
     Active Substance: AMITRIPTYLINE HYDROCHLORIDE
     Indication: PRODUCT USED FOR UNKNOWN INDICATION
     Route: 065
  3. IBANDRONIC ACID. [Suspect]
     Active Substance: IBANDRONIC ACID
     Dosage: LAST DOSE ON 30 JUN 2009, TOTAL DOSE ADMINISTERED SO FAR 1500 MG
     Route: 048
     Dates: start: 20080625

REACTIONS (2)
  - Presyncope [Not Recovered/Not Resolved]
  - Jaw fracture [Not Recovered/Not Resolved]

NARRATIVE: CASE EVENT DATE: 20090630
